FAERS Safety Report 8005514-3 (Version None)
Quarter: 2011Q4

REPORT INFORMATION
  Report Type: 
  Country: None (occurrence: None)
  Receive Date: 20111223
  Receipt Date: 20111213
  Transmission Date: 20120403
  Serious: Yes (Other)
  Sender: FDA-Public Use
  Company Number: US-JNJFOC-20110911876

PATIENT
  Sex: Female
  Weight: 98.43 kg

DRUGS (14)
  1. REMICADE [Suspect]
     Route: 042
     Dates: start: 20110830, end: 20110830
  2. BACTROBAN [Concomitant]
     Route: 061
  3. TOBRADEX [Concomitant]
     Dosage: 1 TUBE BY BOTH EYES
     Route: 047
  4. CALCIUM MAGNESIUM ZINC [Concomitant]
     Dosage: CALCIUM- 333MG, MAGNESIUM 133 MG AND ZINC 8.3MG
     Route: 048
  5. SOLU-CORTEF [Concomitant]
     Indication: PREMEDICATION
     Route: 042
     Dates: start: 20110830
  6. ACETAMINOPHEN [Concomitant]
     Indication: PREMEDICATION
     Route: 048
     Dates: start: 20110830
  7. ZYRTEC [Concomitant]
     Route: 048
  8. REMICADE [Suspect]
     Route: 042
     Dates: start: 20100901, end: 20110801
  9. LIALDA [Concomitant]
     Indication: COLITIS ULCERATIVE
     Route: 048
     Dates: start: 20100401
  10. SODIUM CHLORIDE [Concomitant]
     Dosage: 0.9%
     Route: 042
     Dates: start: 20110830
  11. BENADRYL [Concomitant]
     Indication: PREMEDICATION
     Route: 042
  12. AMBIEN [Concomitant]
     Route: 048
  13. REMICADE [Suspect]
     Indication: COLITIS ULCERATIVE
     Route: 042
  14. FOLIC ACID [Concomitant]
     Route: 048

REACTIONS (5)
  - LUPUS-LIKE SYNDROME [None]
  - EYE INFLAMMATION [None]
  - PALPITATIONS [None]
  - ARTHRALGIA [None]
  - INFUSION RELATED REACTION [None]
